FAERS Safety Report 11795687 (Version 1)
Quarter: 2015Q4

REPORT INFORMATION
  Report Type: Spontaneous
  Country: US (occurrence: US)
  Receive Date: 20151202
  Receipt Date: 20151202
  Transmission Date: 20160305
  Serious: No
  Sender: FDA-Public Use
  Company Number: ALCN2015US001164

PATIENT
  Age: 72 Year
  Sex: Female

DRUGS (4)
  1. NOVOLIN [Concomitant]
     Active Substance: INSULIN HUMAN
     Dosage: UNK
     Route: 065
  2. DORZOLAMIDE,TIMOLOL [Suspect]
     Active Substance: DORZOLAMIDE\TIMOLOL
     Indication: GLAUCOMA
     Dosage: UNK
     Route: 047
  3. RELCON [Concomitant]
     Dosage: 1 GTT, QD
  4. SYSTANE ULTRA [Suspect]
     Active Substance: POLYETHYLENE GLYCOL 400\PROPYLENE GLYCOL
     Dosage: 1 GTT, QID
     Route: 047
     Dates: start: 20140201

REACTIONS (1)
  - Vision blurred [Not Recovered/Not Resolved]
